FAERS Safety Report 11620549 (Version 1)
Quarter: 2015Q4

REPORT INFORMATION
  Report Type: Spontaneous
  Country: FR (occurrence: FR)
  Receive Date: 20151012
  Receipt Date: 20151012
  Transmission Date: 20160304
  Serious: Yes (Life-Threatening, Hospitalization)
  Sender: FDA-Public Use
  Company Number: PHHY2015FR121980

PATIENT
  Age: 13 Year
  Sex: Male

DRUGS (4)
  1. ALKERAN [Interacting]
     Active Substance: MELPHALAN
     Indication: BONE MARROW TRANSPLANT
     Dosage: 90 MG/M2, QD
     Route: 042
     Dates: start: 20131005, end: 20131006
  2. SANDIMMUN [Suspect]
     Active Substance: CYCLOSPORINE
     Indication: BONE MARROW TRANSPLANT
     Dosage: 50 MG/ML, UNK
     Route: 042
     Dates: start: 20131007, end: 20131009
  3. BUSILVEX [Interacting]
     Active Substance: BUSULFAN
     Indication: BONE MARROW TRANSPLANT
     Dosage: 800 UG/KG, QID (OVER 6 HOURS)
     Route: 042
     Dates: start: 20130927, end: 20131001
  4. FLUDARABINE TEVA [Interacting]
     Active Substance: FLUDARABINE PHOSPHATE
     Indication: BONE MARROW TRANSPLANT
     Dosage: 30 MG/M2, QD
     Route: 042
     Dates: start: 20131001, end: 20131004

REACTIONS (2)
  - Thrombotic microangiopathy [Recovered/Resolved]
  - Drug interaction [Recovered/Resolved]

NARRATIVE: CASE EVENT DATE: 20131101
